FAERS Safety Report 13755587 (Version 1)
Quarter: 2017Q3

REPORT INFORMATION
  Report Type: Spontaneous
  Country: CH (occurrence: CH)
  Receive Date: 20170714
  Receipt Date: 20170714
  Transmission Date: 20171127
  Serious: Yes (Hospitalization)
  Sender: FDA-Public Use
  Company Number: CH-SA-2017SA121415

PATIENT
  Age: 91 Year
  Sex: Male

DRUGS (4)
  1. PANTOZOL [Concomitant]
     Active Substance: PANTOPRAZOLE SODIUM
     Route: 048
  2. MARCOUMAR [Suspect]
     Active Substance: PHENPROCOUMON
     Route: 048
     Dates: start: 201610, end: 20170604
  3. CLEXANE [Suspect]
     Active Substance: ENOXAPARIN SODIUM
     Indication: POSTOPERATIVE CARE
     Dosage: VIALS, CARTRIDGES?STOP DATE:JUN-2017
     Route: 058
     Dates: start: 20170607
  4. NOVALGIN [Concomitant]
     Active Substance: METAMIZOLE SODIUM
     Route: 048

REACTIONS (3)
  - Anaemia [Recovering/Resolving]
  - Ureteric obstruction [Recovered/Resolved]
  - Muscle haemorrhage [Recovered/Resolved]

NARRATIVE: CASE EVENT DATE: 201705
